FAERS Safety Report 22521838 (Version 1)
Quarter: 2023Q2

REPORT INFORMATION
  Report Type: Report from Study
  Country: IN (occurrence: IN)
  Receive Date: 20230605
  Receipt Date: 20230605
  Transmission Date: 20230721
  Serious: Yes (Hospitalization)
  Sender: FDA-Public Use
  Company Number: IN-002147023-NVSC2023IN123829

PATIENT
  Age: 36 Year
  Sex: Female

DRUGS (2)
  1. TACROLIMUS [Suspect]
     Active Substance: TACROLIMUS
     Indication: Renal transplant
     Dosage: 4.5 MG, OTHER (2.0 MG IN THE MORNING AND 2.5 MG IN THE EVENING)
     Route: 048
     Dates: start: 20230413
  2. MYFORTIC [Suspect]
     Active Substance: MYCOPHENOLATE SODIUM
     Indication: Renal transplant
     Dosage: 360 MG, BID
     Route: 048
     Dates: start: 20230413

REACTIONS (7)
  - Electrolyte imbalance [Recovered/Resolved]
  - Toxicity to various agents [Recovered/Resolved]
  - Hypoalbuminaemia [Recovered/Resolved]
  - Lower respiratory tract infection [Recovered/Resolved]
  - Blood creatinine increased [Recovered/Resolved]
  - Decreased appetite [Recovered/Resolved]
  - Asthenia [Recovered/Resolved]

NARRATIVE: CASE EVENT DATE: 20230420
